FAERS Safety Report 7669297-9 (Version None)
Quarter: 2011Q3

REPORT INFORMATION
  Report Type: 
  Country: None (occurrence: None)
  Receive Date: 20110808
  Receipt Date: 20110729
  Transmission Date: 20111222
  Serious: Yes (Hospitalization)
  Sender: FDA-Public Use
  Company Number: PHHY2011US69228

PATIENT
  Age: 88 Year
  Sex: Female
  Weight: 53.061 kg

DRUGS (1)
  1. TOBI [Suspect]
     Dosage: 300 MG TWICE A DAY FOR 28 DAYS ON AND 28 DAYS OFF
     Dates: start: 20100901

REACTIONS (1)
  - BLOOD SODIUM DECREASED [None]
